FAERS Safety Report 9908512 (Version 1)
Quarter: 2014Q1

REPORT INFORMATION
  Report Type: Spontaneous
  Country: US (occurrence: None)
  Receive Date: 20140214
  Receipt Date: 20140214
  Transmission Date: 20141002
  Serious: Yes (Hospitalization)
  Sender: FDA-Public Use
  Company Number: None

PATIENT
  Age: 34 None
  Sex: Male
  Weight: 61.3 kg

DRUGS (2)
  1. MOTRIN [Suspect]
     Indication: ABDOMINAL PAIN
     Dosage: 11-2 TABLETS PRN DAILY PO
     Route: 048
  2. TYLENOL [Concomitant]

REACTIONS (2)
  - Alcohol withdrawal syndrome [None]
  - Haematemesis [None]
